FAERS Safety Report 7647973-1 (Version None)
Quarter: 2011Q3

REPORT INFORMATION
  Report Type: 
  Country: None (occurrence: None)
  Receive Date: 20110801
  Receipt Date: 20110721
  Transmission Date: 20111222
  Serious: Yes (Death)
  Sender: FDA-Public Use
  Company Number: US-JNJFOC-20101203389

PATIENT

DRUGS (2)
  1. TRAMADOL HCL [Suspect]
     Indication: ILL-DEFINED DISORDER
     Route: 065
  2. UNKNOWN MEDICATION [Suspect]
     Indication: ILL-DEFINED DISORDER
     Route: 065

REACTIONS (1)
  - DEATH [None]
